FAERS Safety Report 10504626 (Version 1)
Quarter: 2014Q4

REPORT INFORMATION
  Report Type: Spontaneous
  Country: US (occurrence: US)
  Receive Date: 20141008
  Receipt Date: 20141008
  Transmission Date: 20150528
  Serious: Yes (Other)
  Sender: FDA-Public Use
  Company Number: US-ELI_LILLY_AND_COMPANY-US201410000459

PATIENT
  Sex: Female

DRUGS (4)
  1. AVAPRO [Concomitant]
     Active Substance: IRBESARTAN
     Dosage: 75 MG, QD
     Route: 065
  2. ZOCOR [Concomitant]
     Active Substance: SIMVASTATIN
     Dosage: 40 MG, EACH EVENING
     Route: 065
  3. HUMALOG [Suspect]
     Active Substance: INSULIN LISPRO
     Indication: TYPE 1 DIABETES MELLITUS
     Dosage: UNK UNK, PRN
     Route: 065
  4. LANTUS [Concomitant]
     Active Substance: INSULIN GLARGINE
     Dosage: 42 U, EACH EVENING
     Route: 065

REACTIONS (4)
  - Blood glucose increased [Recovered/Resolved]
  - Feeling abnormal [Unknown]
  - Insomnia [Unknown]
  - Drug ineffective [Recovered/Resolved]
